FAERS Safety Report 9440017 (Version 1)
Quarter: 2013Q3

REPORT INFORMATION
  Report Type: Spontaneous
  Country: US (occurrence: US)
  Receive Date: 20130805
  Receipt Date: 20130805
  Transmission Date: 20140515
  Serious: No
  Sender: FDA-Public Use
  Company Number: US-MYLANLABS-2013S1013573

PATIENT
  Age: 60 Year
  Sex: Female
  Weight: 76.66 kg

DRUGS (2)
  1. MODAFINIL TABLETS USP [Suspect]
     Indication: NARCOLEPSY
     Dates: start: 2012
  2. MODAFINIL TABLETS USP [Suspect]
     Indication: NARCOLEPSY
     Dates: start: 2012

REACTIONS (3)
  - Drug ineffective [Not Recovered/Not Resolved]
  - Narcolepsy [Not Recovered/Not Resolved]
  - Urine odour abnormal [Not Recovered/Not Resolved]
